FAERS Safety Report 17650901 (Version 3)
Quarter: 2020Q2

REPORT INFORMATION
  Report Type: Spontaneous
  Country: FR (occurrence: FR)
  Receive Date: 20200409
  Receipt Date: 20200514
  Transmission Date: 20200713
  Serious: Yes (Other)
  Sender: FDA-Public Use
  Company Number: FR-009507513-2004FRA002566

PATIENT
  Age: 53 Year
  Sex: Female

DRUGS (3)
  1. VANCOMYCIN [Concomitant]
     Active Substance: VANCOMYCIN
     Indication: CLOSTRIDIUM DIFFICILE INFECTION
     Dosage: UNK UNK, UNKNOWN FREQ. (FOR 10 DAYS)
     Route: 065
     Dates: start: 20200227
  2. FIDAXOMICIN [Suspect]
     Active Substance: FIDAXOMICIN
     Indication: CLOSTRIDIUM DIFFICILE INFECTION
     Dosage: 1 DF, TWICE DAILY (IN THE MORNING AND IN THE EVENING)
     Route: 048
     Dates: start: 20200320, end: 20200330
  3. ULTRA LEVURE [Concomitant]
     Active Substance: SACCHAROMYCES CEREVISIAE
     Indication: PRODUCT USED FOR UNKNOWN INDICATION
     Dosage: 2 DOSAGE FORM, Q12H
     Route: 065

REACTIONS (19)
  - Apnoea [Recovered/Resolved]
  - Haematochezia [Not Recovered/Not Resolved]
  - Muscle contractions involuntary [Recovered/Resolved]
  - Fatigue [Recovered/Resolved]
  - Choking sensation [Recovered/Resolved]
  - Asphyxia [Recovered/Resolved]
  - Abdominal pain [Not Recovered/Not Resolved]
  - Heart rate abnormal [Recovered/Resolved]
  - Choking sensation [Recovered/Resolved]
  - Fear of death [Recovered/Resolved]
  - Back pain [Recovered/Resolved]
  - Dyspnoea [Not Recovered/Not Resolved]
  - Abdominal distension [Recovered/Resolved]
  - Sense of oppression [Not Recovered/Not Resolved]
  - Anxiety [Not Recovered/Not Resolved]
  - Renal pain [Recovered/Resolved]
  - Dry mouth [Recovered/Resolved]
  - Flatulence [Recovered/Resolved]
  - Headache [Recovered/Resolved]

NARRATIVE: CASE EVENT DATE: 202003
